FAERS Safety Report 15611309 (Version 9)
Quarter: 2024Q2

REPORT INFORMATION
  Report Type: Other
  Country: US (occurrence: None)
  Receive Date: 20181113
  Receipt Date: 20240529
  Transmission Date: 20240716
  Serious: Yes (Hospitalization, Other)
  Sender: FDA-Public Use
  Company Number: US-ROCHE-2207822

PATIENT
  Age: 40 Year
  Sex: Male
  Weight: 56 kg

DRUGS (11)
  1. HEMLIBRA [Suspect]
     Active Substance: EMICIZUMAB-KXWH
     Indication: Factor VIII deficiency
     Dosage: MOST RECENT DOSE PRIOR TO STEMI ON 20/OCT/2018 ON SATURDAY
     Route: 058
     Dates: start: 20180621, end: 20181020
  2. HEMLIBRA [Suspect]
     Active Substance: EMICIZUMAB-KXWH
     Route: 058
  3. HEMLIBRA [Suspect]
     Active Substance: EMICIZUMAB-KXWH
     Dosage: ON SATURDAYS, DOSE DECREASED TO 85MG WEEKLY
     Route: 058
     Dates: start: 20181027
  4. NOVOSEVEN [Suspect]
     Active Substance: COAGULATION FACTOR VIIA RECOMBINANT HUMAN
     Indication: Intermenstrual bleeding
     Dosage: 90-100 MG/KG?AS REQUIRED
     Route: 042
     Dates: start: 20181023, end: 20181023
  5. NOVOSEVEN [Suspect]
     Active Substance: COAGULATION FACTOR VIIA RECOMBINANT HUMAN
     Indication: Arthralgia
     Dosage: AS REQUIRED
     Route: 042
  6. NOVOSEVEN [Suspect]
     Active Substance: COAGULATION FACTOR VIIA RECOMBINANT HUMAN
     Indication: Haemarthrosis
  7. TYLENOL [Concomitant]
     Active Substance: ACETAMINOPHEN
     Dosage: TAKE 2 TABLETS
     Route: 048
  8. COLACE [Concomitant]
     Active Substance: DOCUSATE SODIUM
     Route: 048
  9. PERCOCET [Concomitant]
     Active Substance: ACETAMINOPHEN\OXYCODONE HYDROCHLORIDE
     Indication: Pain
     Route: 048
     Dates: start: 20181117
  10. ASPIRIN [Concomitant]
     Active Substance: ASPIRIN
  11. PLAVIX [Concomitant]
     Active Substance: CLOPIDOGREL BISULFATE

REACTIONS (9)
  - Arthritis bacterial [Unknown]
  - Acute myocardial infarction [Recovered/Resolved]
  - Haemorrhage [Unknown]
  - Pulmonary embolism [Recovering/Resolving]
  - Staphylococcal bacteraemia [Unknown]
  - Bacteraemia [Unknown]
  - Dressler^s syndrome [Recovered/Resolved]
  - Skin laceration [Unknown]
  - Thrombocytosis [Unknown]

NARRATIVE: CASE EVENT DATE: 20180801
